FAERS Safety Report 18198032 (Version 1)
Quarter: 2020Q3

REPORT INFORMATION
  Report Type: Spontaneous
  Country: FR (occurrence: FR)
  Receive Date: 20200826
  Receipt Date: 20200826
  Transmission Date: 20201103
  Serious: Yes (Hospitalization, Other)
  Sender: FDA-Public Use
  Company Number: FR-PFIZER INC-2020327501

PATIENT
  Age: 35 Year
  Sex: Male
  Weight: 68 kg

DRUGS (9)
  1. XEPLION [Concomitant]
     Active Substance: PALIPERIDONE PALMITATE
     Indication: SCHIZOPHRENIA
     Dosage: 1 DF, CYCLIC (EVERY 28 DAYS)
     Route: 030
  2. IFOSFAMIDE. [Suspect]
     Active Substance: IFOSFAMIDE
     Indication: TESTICULAR GERM CELL TUMOUR
     Dosage: 1500 MG/M2, CYCLIC (EVERY 21 DAYS)
     Route: 042
     Dates: start: 20200612, end: 20200703
  3. ANAFRANIL [Concomitant]
     Active Substance: CLOMIPRAMINE HYDROCHLORIDE
     Indication: DEPRESSION
     Dosage: 1 DF, 1X/DAY
     Route: 048
  4. PACLITAXEL. [Suspect]
     Active Substance: PACLITAXEL
     Indication: TESTICULAR GERM CELL TUMOUR
     Dosage: 250 MG/M2, CYCLIC (EVERY 21 DAYS)
     Route: 042
     Dates: start: 20200612, end: 20200703
  5. GRANOCYTE [Concomitant]
     Active Substance: LENOGRASTIM
     Indication: NEUTROPENIA
     Dosage: 1 DF, 1X/DAY
     Route: 058
     Dates: start: 20200612, end: 20200703
  6. LOXAPAC [LOXAPINE SUCCINATE] [Concomitant]
     Active Substance: LOXAPINE SUCCINATE
     Indication: PSYCHOTIC DISORDER
     Dosage: 25 MG, 1X/DAY
     Route: 048
  7. CISPLATIN. [Suspect]
     Active Substance: CISPLATIN
     Indication: TESTICULAR GERM CELL TUMOUR
     Dosage: 25 MG/M2, CYCLIC (EVERY 21 DAYS)
     Route: 042
     Dates: start: 20200612, end: 20200703
  8. KEPPRA [Concomitant]
     Active Substance: LEVETIRACETAM
     Indication: EPILEPSY
     Dosage: 1 DF, 1X/DAY
     Route: 048
  9. TERALITHE [Concomitant]
     Active Substance: LITHIUM CARBONATE
     Indication: BIPOLAR DISORDER RELAPSE PROPHYLAXIS
     Dosage: 600 MG, 1X/DAY
     Route: 048

REACTIONS (3)
  - Diarrhoea [Recovered/Resolved]
  - Neutropenic colitis [Recovered/Resolved]
  - Pancytopenia [Recovered/Resolved]

NARRATIVE: CASE EVENT DATE: 20200618
